FAERS Safety Report 11203524 (Version 3)
Quarter: 2016Q3

REPORT INFORMATION
  Report Type: Spontaneous
  Country: US (occurrence: US)
  Receive Date: 20150619
  Receipt Date: 20160705
  Transmission Date: 20161109
  Serious: Yes (Other)
  Sender: FDA-Public Use
  Company Number: US-ASTELLAS-2015US020991

PATIENT
  Age: 71 Year
  Sex: Male

DRUGS (2)
  1. XTANDI [Suspect]
     Active Substance: ENZALUTAMIDE
     Indication: PROSTATE CANCER
     Route: 048
  2. XTANDI [Suspect]
     Active Substance: ENZALUTAMIDE
     Indication: BONE NEOPLASM

REACTIONS (7)
  - Back pain [Unknown]
  - Diabetes mellitus [Unknown]
  - Fatigue [Unknown]
  - Therapeutic response changed [Unknown]
  - Somnolence [Unknown]
  - Depression [Unknown]
  - Constipation [Unknown]

NARRATIVE: CASE EVENT DATE: 20151023
